FAERS Safety Report 23615750 (Version 2)
Quarter: 2024Q1

REPORT INFORMATION
  Report Type: Spontaneous
  Country: IT (occurrence: IT)
  Receive Date: 20240311
  Receipt Date: 20240313
  Transmission Date: 20240410
  Serious: Yes (Death, Other)
  Sender: FDA-Public Use
  Company Number: IT-ASPEN-GLO2024IT000933

PATIENT
  Age: 42 Year
  Sex: Male

DRUGS (20)
  1. FLUDARABINE PHOSPHATE [Suspect]
     Active Substance: FLUDARABINE PHOSPHATE
     Indication: Hepatosplenic T-cell lymphoma
     Dosage: 50 MG/M2, QD, CONDITIONING REGIMEN DAY 5 AND DAY 3
     Route: 065
  2. FLUDARABINE PHOSPHATE [Suspect]
     Active Substance: FLUDARABINE PHOSPHATE
     Indication: Bone marrow conditioning regimen
  3. FLUDARABINE PHOSPHATE [Suspect]
     Active Substance: FLUDARABINE PHOSPHATE
     Indication: Allogenic stem cell transplantation
  4. METHOTREXATE [Suspect]
     Active Substance: METHOTREXATE
     Indication: Hepatosplenic T-cell lymphoma
     Dosage: UNK (SHORT-COURSE)
     Route: 065
  5. METHOTREXATE [Suspect]
     Active Substance: METHOTREXATE
     Indication: Prophylaxis against graft versus host disease
  6. CYCLOSPORINE [Suspect]
     Active Substance: CYCLOSPORINE
     Indication: Prophylaxis against graft versus host disease
     Dosage: UNK
     Route: 065
  7. BUSULFAN [Suspect]
     Active Substance: BUSULFAN
     Indication: Hepatosplenic T-cell lymphoma
     Dosage: 3.2 MG/KG, QD (1/DAY)
     Route: 065
  8. BUSULFAN [Suspect]
     Active Substance: BUSULFAN
     Indication: Bone marrow conditioning regimen
  9. BUSULFAN [Suspect]
     Active Substance: BUSULFAN
     Indication: Allogenic stem cell transplantation
  10. THIOTEPA [Suspect]
     Active Substance: THIOTEPA
     Indication: Bone marrow conditioning regimen
     Dosage: 5 MG/KG, QD (1/DAY)  (-7 AND -6)
     Route: 065
  11. THIOTEPA [Suspect]
     Active Substance: THIOTEPA
     Indication: Hepatosplenic T-cell lymphoma
  12. THIOTEPA [Suspect]
     Active Substance: THIOTEPA
     Indication: Bone marrow conditioning regimen
  13. THIOTEPA [Suspect]
     Active Substance: THIOTEPA
     Indication: Allogenic stem cell transplantation
  14. THYMOGLOBULINE [Suspect]
     Active Substance: LAPINE T-LYMPHOCYTE IMMUNE GLOBULIN
     Indication: Prophylaxis against graft versus host disease
     Dosage: UNK
     Route: 065
  15. ETOPOSIDE [Concomitant]
     Active Substance: ETOPOSIDE
     Indication: Hepatosplenic T-cell lymphoma
     Dosage: UNK 3 CYCLES
     Route: 065
  16. IFOSFAMIDE [Concomitant]
     Active Substance: IFOSFAMIDE
     Indication: Hepatosplenic T-cell lymphoma
     Dosage: UNK
     Route: 065
  17. DECADRON [Concomitant]
     Active Substance: DEXAMETHASONE
     Indication: Hepatosplenic T-cell lymphoma
     Dosage: UNK
     Route: 065
  18. PARAPLATIN [Concomitant]
     Active Substance: CARBOPLATIN
     Indication: Hepatosplenic T-cell lymphoma
     Dosage: UNK
     Route: 065
  19. ELOXATIN [Concomitant]
     Active Substance: OXALIPLATIN
     Indication: Hepatosplenic T-cell lymphoma
     Dosage: UNK
     Route: 065
  20. CYTARABINE [Concomitant]
     Active Substance: CYTARABINE
     Indication: Hepatosplenic T-cell lymphoma
     Dosage: UNK
     Route: 065

REACTIONS (6)
  - Acute graft versus host disease [Fatal]
  - Vanishing bile duct syndrome [Fatal]
  - Off label use [Fatal]
  - Bacterial test positive [Recovered/Resolved]
  - Pseudomonas infection [Recovered/Resolved]
  - Renal impairment [Unknown]
